FAERS Safety Report 4925159-9 (Version None)
Quarter: 2006Q1

REPORT INFORMATION
  Report Type: 
  Country: None (occurrence: None)
  Receive Date: 20060228
  Receipt Date: 20051215
  Transmission Date: 20060701
  Serious: No
  Sender: FDA-Public Use
  Company Number: US-GLAXOSMITHKLINE-A0585975A

PATIENT
  Age: 65 Year
  Sex: Male

DRUGS (5)
  1. AVODART [Suspect]
     Indication: BENIGN PROSTATIC HYPERPLASIA
     Dosage: .5MG PER DAY
     Route: 048
  2. ASPIRIN [Concomitant]
  3. TOPROL [Concomitant]
  4. MELATONIN [Concomitant]
  5. UNSPECIFIED MEDICATIONS [Concomitant]
     Route: 065

REACTIONS (5)
  - CONSTIPATION [None]
  - DRUG INEFFECTIVE [None]
  - HEADACHE [None]
  - INSOMNIA [None]
  - MALAISE [None]
